FAERS Safety Report 6552104-5 (Version None)
Quarter: 2010Q1

REPORT INFORMATION
  Report Type: 
  Country: None (occurrence: None)
  Receive Date: 20100126
  Receipt Date: 20100121
  Transmission Date: 20100710
  Serious: Yes (Other)
  Sender: FDA-Public Use
  Company Number: CA-JNJFOC-20091202072

PATIENT
  Sex: Female

DRUGS (8)
  1. SIMPONI [Suspect]
     Indication: ANKYLOSING SPONDYLITIS
     Route: 058
  2. SIMPONI [Suspect]
     Route: 058
  3. SIMPONI [Suspect]
     Route: 058
  4. H1N1 VACCINE [Suspect]
     Indication: INFLUENZA IMMUNISATION
     Route: 050
  5. METHOTREXATE [Concomitant]
  6. MELOXICAM [Concomitant]
  7. FOLIC ACID [Concomitant]
  8. DECONGESTANTS NOS [Concomitant]
     Indication: RHINORRHOEA

REACTIONS (8)
  - ABNORMAL SENSATION IN EYE [None]
  - COUGH [None]
  - HEADACHE [None]
  - MIGRAINE [None]
  - MYALGIA [None]
  - PYREXIA [None]
  - RESPIRATORY TRACT CONGESTION [None]
  - RHINORRHOEA [None]
